FAERS Safety Report 14584116 (Version 1)
Quarter: 2018Q1

REPORT INFORMATION
  Report Type: Spontaneous
  Country: US (occurrence: US)
  Receive Date: 20180228
  Receipt Date: 20180228
  Transmission Date: 20180509
  Serious: No
  Sender: FDA-Public Use
  Company Number: US-VIFOR (INTERNATIONAL) INC.-VIT-2018-02121

PATIENT
  Age: 74 Year
  Sex: Female

DRUGS (34)
  1. NITROSTAT [Concomitant]
     Active Substance: NITROGLYCERIN
  2. CYANOCOBALAMIN. [Concomitant]
     Active Substance: CYANOCOBALAMIN
  3. MAGNESIUM OXIDE. [Concomitant]
     Active Substance: MAGNESIUM OXIDE
  4. VELTASSA [Suspect]
     Active Substance: PATIROMER
     Indication: HYPERKALAEMIA
     Route: 048
     Dates: start: 20160325
  5. BUMETANIDE. [Concomitant]
     Active Substance: BUMETANIDE
  6. COLCRYS [Concomitant]
     Active Substance: COLCHICINE
  7. GABAPENTIN. [Concomitant]
     Active Substance: GABAPENTIN
  8. HYDROXYZINE EMBONATE [Concomitant]
     Active Substance: HYDROXYZINE PAMOATE
  9. TRIAMCINOLONE ACETONIDE. [Concomitant]
     Active Substance: TRIAMCINOLONE ACETONIDE
  10. ZOCOR [Concomitant]
     Active Substance: SIMVASTATIN
  11. ACETYLSALICYLIC ACID [Concomitant]
     Active Substance: ASPIRIN
  12. CALCIUM CARBONATE. [Concomitant]
     Active Substance: CALCIUM CARBONATE
  13. OMEPRAZOLE. [Concomitant]
     Active Substance: OMEPRAZOLE
  14. ALLOPURINOL. [Concomitant]
     Active Substance: ALLOPURINOL
  15. AMOXICILLIN. [Concomitant]
     Active Substance: AMOXICILLIN
  16. LISINOPRIL. [Concomitant]
     Active Substance: LISINOPRIL
  17. NORTRIPTYLINE HYDROCHLORIDE. [Concomitant]
     Active Substance: NORTRIPTYLINE HYDROCHLORIDE
  18. CARVEDILOL. [Concomitant]
     Active Substance: CARVEDILOL
  19. CYCLOBENZAPRINE HYDROCHLORIDE. [Concomitant]
     Active Substance: CYCLOBENZAPRINE HYDROCHLORIDE
  20. ENDOCET [Concomitant]
     Active Substance: ACETAMINOPHEN\OXYCODONE HYDROCHLORIDE
  21. FLUOROURACIL. [Concomitant]
     Active Substance: FLUOROURACIL
  22. KETOCONAZOLE. [Concomitant]
     Active Substance: KETOCONAZOLE
  23. LEVOTHYROXINE SODIUM. [Concomitant]
     Active Substance: LEVOTHYROXINE SODIUM
  24. BETAMETHASONE DIPROPIONATE~~CLOTRIMAZOLE [Concomitant]
  25. NOVOLIN [Concomitant]
     Active Substance: INSULIN HUMAN
  26. CALCITRATE [Concomitant]
     Active Substance: CALCIUM CITRATE
  27. FENOFIBRATE. [Concomitant]
     Active Substance: FENOFIBRATE
  28. ISOSORBIDE MONONITRATE. [Concomitant]
     Active Substance: ISOSORBIDE MONONITRATE
  29. KIONEX [Concomitant]
     Active Substance: SODIUM POLYSTYRENE SULFONATE
  30. RANEXA [Concomitant]
     Active Substance: RANOLAZINE
  31. COLECALCIFEROL [Concomitant]
     Active Substance: CHOLECALCIFEROL
  32. BUSPIRONE HYDROCHLORIDE. [Concomitant]
     Active Substance: BUSPIRONE HYDROCHLORIDE
  33. FERAHEME [Concomitant]
     Active Substance: FERUMOXYTOL NON-STOICHIOMETRIC MAGNETITE
  34. HYDROXYZINE HYDROCHLORIDE. [Concomitant]
     Active Substance: HYDROXYZINE HYDROCHLORIDE

REACTIONS (2)
  - No adverse event [Unknown]
  - Drug dose omission [Unknown]

NARRATIVE: CASE EVENT DATE: 20180227
